FAERS Safety Report 12239750 (Version 1)
Quarter: 2016Q2

REPORT INFORMATION
  Report Type: Spontaneous
  Country: US (occurrence: US)
  Receive Date: 20160405
  Receipt Date: 20160405
  Transmission Date: 20160815
  Serious: No
  Sender: FDA-Public Use
  Company Number: US-ROCHE-1646389

PATIENT
  Age: 87 Year
  Sex: Male

DRUGS (2)
  1. ERIVEDGE [Suspect]
     Active Substance: VISMODEGIB
     Indication: SKIN CANCER
     Route: 048
     Dates: start: 20150922, end: 20150926
  2. WARFARIN [Concomitant]
     Active Substance: WARFARIN
     Route: 048
     Dates: start: 2006

REACTIONS (1)
  - Constipation [Recovered/Resolved]

NARRATIVE: CASE EVENT DATE: 20150923
